FAERS Safety Report 4970103-1 (Version None)
Quarter: 2006Q2

REPORT INFORMATION
  Report Type: 
  Country: None (occurrence: None)
  Receive Date: 20060412
  Receipt Date: 20041126
  Transmission Date: 20061013
  Serious: Yes (Other)
  Sender: FDA-Public Use
  Company Number: PHBS2004CH16127

PATIENT
  Age: 66 Year
  Sex: Male

DRUGS (11)
  1. AREDIA [Suspect]
     Indication: BONE DISORDER
     Dosage: 90 MG, QW
     Route: 042
     Dates: start: 20020101, end: 20030501
  2. ZOMETA [Suspect]
     Indication: BONE DISORDER
     Dosage: 4 MG, QMO
     Route: 042
     Dates: start: 20030501
  3. CORDARONE [Concomitant]
     Indication: CARDIOMYOPATHY
     Dosage: 200 MG/D
     Route: 065
  4. ASPIRIN [Concomitant]
     Indication: CARDIOMYOPATHY
     Dosage: 100 MG/D
     Route: 065
  5. LOPRESSOR [Concomitant]
     Indication: HYPERTENSION
     Route: 065
  6. DILATREND [Concomitant]
     Indication: HYPERTENSION
     Dosage: 6.5 MG/D
     Route: 065
  7. SELIPRAN [Concomitant]
     Indication: HYPERCHOLESTEROLAEMIA
     Dosage: 40 MG/D
     Route: 065
  8. VINCRISTINE + ADRIAMYCIN + DEXAMETHASONE [Concomitant]
     Indication: MULTIPLE MYELOMA
     Dosage: UNK, UNK
     Route: 065
     Dates: end: 20031201
  9. THALIDOMIDE [Concomitant]
     Dosage: UNK, UNK
     Route: 065
     Dates: end: 20031201
  10. PREDNISONE [Concomitant]
     Indication: MULTIPLE MYELOMA
     Route: 065
     Dates: end: 20031201
  11. ALKERAN [Concomitant]
     Indication: MULTIPLE MYELOMA
     Route: 065
     Dates: end: 20031201

REACTIONS (7)
  - BONE DISORDER [None]
  - OSTECTOMY [None]
  - OSTEITIS [None]
  - OSTEONECROSIS [None]
  - SEQUESTRECTOMY [None]
  - TOOTH EXTRACTION [None]
  - TOOTH INFECTION [None]
